FAERS Safety Report 21120828 (Version 1)
Quarter: 2022Q3

REPORT INFORMATION
  Report Type: Spontaneous
  Country: US (occurrence: None)
  Receive Date: 20220722
  Receipt Date: 20220722
  Transmission Date: 20221027
  Serious: Yes (Hospitalization)
  Sender: FDA-Public Use
  Company Number: None

PATIENT
  Age: 11 Year
  Sex: Female
  Weight: 31.7 kg

DRUGS (1)
  1. CATHFLO ACTIVASE [Suspect]
     Active Substance: ALTEPLASE
     Indication: Thrombosis
     Dosage: FREQUENCY : ONCE;?
     Route: 040
     Dates: start: 20220712, end: 20220712

REACTIONS (4)
  - Drug hypersensitivity [None]
  - Hypersensitivity [None]
  - Device occlusion [None]
  - Anxiety [None]

NARRATIVE: CASE EVENT DATE: 20220712
